FAERS Safety Report 14420013 (Version 3)
Quarter: 2018Q1

REPORT INFORMATION
  Report Type: Spontaneous
  Country: DE (occurrence: DE)
  Receive Date: 20180122
  Receipt Date: 20180202
  Transmission Date: 20180509
  Serious: Yes (Life-Threatening)
  Sender: FDA-Public Use
  Company Number: DE-PFIZER INC-2018025355

PATIENT
  Age: 9 Year
  Sex: Male
  Weight: 24 kg

DRUGS (8)
  1. DESFLURANE. [Concomitant]
     Active Substance: DESFLURANE
     Indication: GENERAL ANAESTHESIA
     Dosage: 0.9 MAC
  2. SUFENTANIL [Concomitant]
     Active Substance: SUFENTANIL
     Indication: ANALGESIC THERAPY
     Dosage: 12.5 UG, UNK
     Route: 042
  3. TRANEXAMIC ACID. [Suspect]
     Active Substance: TRANEXAMIC ACID
     Indication: HAEMORRHAGE
     Dosage: 250 MG, UNK
     Route: 042
  4. ROPIVACAINE [Concomitant]
     Active Substance: ROPIVACAINE
     Indication: RHEUMATOID ARTHRITIS
     Dosage: 75 MG, UNK
     Route: 042
  5. NORDRENALINE [Concomitant]
     Dosage: 30 UG, UNK
     Route: 042
  6. PROPOFOL. [Concomitant]
     Active Substance: PROPOFOL
     Indication: GENERAL ANAESTHESIA
     Dosage: 120 MG, UNK
     Route: 042
  7. CEFUROXIM [Concomitant]
     Active Substance: CEFUROXIME
     Indication: ANTIBIOTIC PROPHYLAXIS
     Dosage: 600 MG, UNK
     Route: 042
  8. REMIFENTANIL [Concomitant]
     Active Substance: REMIFENTANIL
     Indication: GENERAL ANAESTHESIA
     Dosage: 200 UG, PER 1H
     Route: 042

REACTIONS (1)
  - Haemodynamic instability [Recovered/Resolved]

NARRATIVE: CASE EVENT DATE: 20171130
